FAERS Safety Report 5848890-X (Version None)
Quarter: 2008Q3

REPORT INFORMATION
  Report Type: 
  Country: None (occurrence: None)
  Receive Date: 20080818
  Receipt Date: 20080806
  Transmission Date: 20090109
  Serious: Yes (Other)
  Sender: FDA-Public Use
  Company Number: GB-PFIZER INC-2008066334

PATIENT
  Age: 41 Year
  Sex: Female
  Weight: 82 kg

DRUGS (3)
  1. CHANTIX [Suspect]
     Indication: SMOKING CESSATION THERAPY
     Route: 048
     Dates: start: 20080604, end: 20080618
  2. LISINOPRIL AND HYDROCHLOROTHIAZIDE [Concomitant]
     Indication: HYPERTENSION
     Route: 048
  3. PAROXETINE HCL [Concomitant]
     Indication: DEPRESSION
     Route: 048

REACTIONS (2)
  - DEPRESSION [None]
  - INSOMNIA [None]
